FAERS Safety Report 25242566 (Version 3)
Quarter: 2025Q3

REPORT INFORMATION
  Report Type: Spontaneous
  Country: US (occurrence: US)
  Receive Date: 20250427
  Receipt Date: 20250723
  Transmission Date: 20251021
  Serious: Yes (Other)
  Sender: GLAXOSMITHKLINE
  Company Number: US-GSK-US2025048884

PATIENT
  Age: 71 Year
  Sex: Female

DRUGS (2)
  1. BENLYSTA [Suspect]
     Active Substance: BELIMUMAB
     Indication: Product used for unknown indication
  2. BENLYSTA [Suspect]
     Active Substance: BELIMUMAB
     Indication: Systemic lupus erythematosus

REACTIONS (8)
  - Atrial fibrillation [Unknown]
  - Arthritis [Unknown]
  - Brain fog [Not Recovered/Not Resolved]
  - Fatigue [Unknown]
  - Anaemia [Not Recovered/Not Resolved]
  - Procedural haemorrhage [Unknown]
  - Arterial disorder [Unknown]
  - Product dose omission issue [Unknown]

NARRATIVE: CASE EVENT DATE: 20250702
